FAERS Safety Report 5011333-2 (Version None)
Quarter: 2006Q2

REPORT INFORMATION
  Report Type: 
  Country: None (occurrence: None)
  Receive Date: 20060404
  Receipt Date: 20060109
  Transmission Date: 20061013
  Serious: No
  Sender: FDA-Public Use
  Company Number: US200601001357

PATIENT
  Sex: Female

DRUGS (7)
  1. CYMBALTA [Suspect]
     Indication: NERVOUSNESS
     Dosage: 60 MG
     Dates: start: 20060102, end: 20060105
  2. CYMBALTA [Suspect]
     Indication: NERVOUSNESS
     Dosage: 60 MG
     Dates: start: 20060108
  3. GLUCOPHAGE ^BOEHRINGER MANHEIM^ (METFORMIN HYDROCHLORIDE) [Concomitant]
  4. PRINZIDE [Concomitant]
  5. PREMARIN [Concomitant]
  6. DILTIAZEM [Concomitant]
  7. ANALGESIC AGENT LY027094 (ANALGESIC AGENT LY027094 UNKNOWN FORMULATION [Concomitant]

REACTIONS (4)
  - DIZZINESS [None]
  - FEELING DRUNK [None]
  - OCCUPATIONAL PROBLEM ENVIRONMENTAL [None]
  - SOMNOLENCE [None]
